FAERS Safety Report 16806643 (Version 1)
Quarter: 2019Q3

REPORT INFORMATION
  Report Type: Spontaneous
  Country: GB (occurrence: GB)
  Receive Date: 20190913
  Receipt Date: 20190913
  Transmission Date: 20191005
  Serious: Yes (Other)
  Sender: FDA-Public Use
  Company Number: GB-MYLANLABS-2019M1084904

PATIENT
  Age: 80 Year
  Sex: Male

DRUGS (8)
  1. SILDENAFIL. [Concomitant]
     Active Substance: SILDENAFIL
  2. INDAPAMIDE. [Concomitant]
     Active Substance: INDAPAMIDE
  3. RAMIPRIL. [Concomitant]
     Active Substance: RAMIPRIL
  4. RIVASTIGMINE. [Suspect]
     Active Substance: RIVASTIGMINE
     Indication: PRODUCT USED FOR UNKNOWN INDICATION
     Dosage: 9.5 MILLIGRAM
     Route: 062
     Dates: start: 20190114, end: 20190219
  5. MIRABEGRON [Concomitant]
     Active Substance: MIRABEGRON
  6. SIMVASTATIN. [Concomitant]
     Active Substance: SIMVASTATIN
  7. COCODAMOL [Concomitant]
     Active Substance: ACETAMINOPHEN\CODEINE PHOSPHATE
  8. HYOSCINE BUTYLBROMIDE [Concomitant]
     Active Substance: BUTYLSCOPOLAMINE BROMIDE

REACTIONS (3)
  - Swelling face [Recovered/Resolved]
  - Application site inflammation [Recovered/Resolved]
  - Application site erythema [Recovered/Resolved]

NARRATIVE: CASE EVENT DATE: 20190114
